FAERS Safety Report 8806663 (Version 1)
Quarter: 2012Q4

REPORT INFORMATION
  Report Type: Spontaneous
  Country: US (occurrence: None)
  Receive Date: 20120920
  Receipt Date: 20120920
  Transmission Date: 20130627
  Serious: No
  Sender: FDA-Public Use
  Company Number: None

PATIENT
  Age: 59 Year
  Sex: Male
  Weight: 100.25 kg

DRUGS (2)
  1. AGGRENOX [Suspect]
     Indication: CAROTID ARTERY STENOSIS
     Dates: start: 20120608
  2. LISINOPRIL [Concomitant]

REACTIONS (1)
  - Hyperhidrosis [None]
